FAERS Safety Report 5424437-7 (Version None)
Quarter: 2007Q3

REPORT INFORMATION
  Report Type: 
  Country: None (occurrence: None)
  Receive Date: 20070822
  Receipt Date: 20070809
  Transmission Date: 20080115
  Serious: Yes (Death, Hospitalization)
  Sender: FDA-Public Use
  Company Number: 2007BI014441

PATIENT
  Age: 60 Year
  Sex: Male

DRUGS (7)
  1. AVONEX [Suspect]
     Indication: MULTIPLE SCLEROSIS
     Dosage: 1 UNK QW IM
     Route: 030
     Dates: start: 20050101
  2. ASPIRIN [Concomitant]
  3. CAPTOPRIL [Concomitant]
  4. CARBAMAZEPINE [Concomitant]
  5. GLYBURIDE [Concomitant]
  6. HYDROCHLOROTHIAZIDE [Concomitant]
  7. METICORTEN [Concomitant]

REACTIONS (8)
  - ANXIETY [None]
  - CARDIAC ARREST [None]
  - DIABETES MELLITUS [None]
  - DIABETIC FOOT INFECTION [None]
  - GAIT DISTURBANCE [None]
  - LEG AMPUTATION [None]
  - MULTIPLE SCLEROSIS RELAPSE [None]
  - PAIN [None]
